FAERS Safety Report 8439622-X (Version None)
Quarter: 2012Q2

REPORT INFORMATION
  Report Type: 
  Country: None (occurrence: None)
  Receive Date: 20120606
  Receipt Date: 20120530
  Transmission Date: 20120825
  Serious: Yes (Hospitalization)
  Sender: FDA-Public Use
  Company Number: 2012SP011434

PATIENT
  Age: 56 Year
  Sex: Male
  Weight: 71 kg

DRUGS (10)
  1. REBETOL [Suspect]
     Indication: HEPATITIS C
     Dosage: 600 MG, QD, PO
     Route: 048
     Dates: start: 20120209, end: 20120222
  2. TELAVIC [Suspect]
     Indication: HEPATITIS C
     Dosage: 2250;1500 MG, QD, PO
     Route: 048
     Dates: start: 20120209
  3. TELAVIC [Suspect]
     Indication: HEPATITIS C
     Dosage: 2250;1500 MG, QD, PO
     Route: 048
     Dates: start: 20120217, end: 20120222
  4. PEG-INTRON [Suspect]
     Indication: HEPATITIS C
     Dosage: 1.5 MCG/KG, QW, SC
     Route: 058
     Dates: start: 20120209, end: 20120222
  5. NOVORAPID [Concomitant]
  6. LOSARTAN POTASSIUM [Concomitant]
  7. NORVASC [Concomitant]
  8. LASIX [Concomitant]
  9. AMARYL [Concomitant]
  10. ALDACTONE [Concomitant]

REACTIONS (4)
  - HYPERKALAEMIA [None]
  - DIALYSIS [None]
  - CARDIAC ARREST [None]
  - DECREASED APPETITE [None]
